FAERS Safety Report 5821447-2 (Version None)
Quarter: 2008Q3

REPORT INFORMATION
  Report Type: 
  Country: None (occurrence: None)
  Receive Date: 20080724
  Receipt Date: 20080718
  Transmission Date: 20090109
  Serious: Yes (Other)
  Sender: FDA-Public Use
  Company Number: A0739184A

PATIENT
  Age: 16 Year
  Sex: Female

DRUGS (3)
  1. LAMICTAL [Suspect]
     Indication: EPILEPSY
     Dosage: 50MG TWICE PER DAY
     Route: 048
     Dates: start: 20080601
  2. TOPAMAX [Concomitant]
  3. UNSPECIFIED MEDICATION [Concomitant]

REACTIONS (2)
  - GRAND MAL CONVULSION [None]
  - RESPIRATORY ARREST [None]
